FAERS Safety Report 12535535 (Version 1)
Quarter: 2016Q3

REPORT INFORMATION
  Report Type: Spontaneous
  Country: US (occurrence: None)
  Receive Date: 20160706
  Receipt Date: 20160706
  Transmission Date: 20161109
  Serious: No
  Sender: FDA-Public Use
  Company Number: None

PATIENT
  Age: 64 Year
  Sex: Female

DRUGS (1)
  1. IBRANCE [Suspect]
     Active Substance: PALBOCICLIB
     Indication: BREAST CANCER
     Dosage: 1 QD , FOR 21 DAYS
     Route: 048
     Dates: start: 20160623

REACTIONS (2)
  - Fatigue [None]
  - Ligament sprain [None]

NARRATIVE: CASE EVENT DATE: 2016
